FAERS Safety Report 25390647 (Version 2)
Quarter: 2025Q3

REPORT INFORMATION
  Report Type: Report from Study
  Country: CA (occurrence: CA)
  Receive Date: 20250603
  Receipt Date: 20250728
  Transmission Date: 20251021
  Serious: Yes (Other)
  Sender: TAKEDA
  Company Number: CA-TAKEDA-2024TUS093524

PATIENT
  Age: 71 Year
  Sex: Female

DRUGS (9)
  1. VEDOLIZUMAB [Suspect]
     Active Substance: VEDOLIZUMAB
     Indication: Crohn^s disease
  2. VEDOLIZUMAB [Suspect]
     Active Substance: VEDOLIZUMAB
  3. VEDOLIZUMAB [Suspect]
     Active Substance: VEDOLIZUMAB
  4. VEDOLIZUMAB [Suspect]
     Active Substance: VEDOLIZUMAB
  5. VEDOLIZUMAB [Suspect]
     Active Substance: VEDOLIZUMAB
  6. BUDESONIDE [Concomitant]
     Active Substance: BUDESONIDE
  7. AMLODIPINE [Concomitant]
     Active Substance: AMLODIPINE BESYLATE
  8. Ran Esomeprazole [Concomitant]
  9. TOLTERODINE [Concomitant]
     Active Substance: TOLTERODINE
     Dosage: 1 MILLIGRAM, BID

REACTIONS (9)
  - Headache [Not Recovered/Not Resolved]
  - Blood pressure increased [Unknown]
  - Hypoaesthesia oral [Recovering/Resolving]
  - Lip swelling [Not Recovered/Not Resolved]
  - Mouth swelling [Not Recovered/Not Resolved]
  - Infusion site paraesthesia [Unknown]
  - Head discomfort [Unknown]
  - Stress [Unknown]
  - Infusion site pain [Unknown]

NARRATIVE: CASE EVENT DATE: 20240918
